FAERS Safety Report 8088792-4 (Version None)
Quarter: 2012Q1

REPORT INFORMATION
  Report Type: 
  Country: None (occurrence: None)
  Receive Date: 20120128
  Receipt Date: 20110428
  Transmission Date: 20120608
  Serious: No
  Sender: FDA-Public Use
  Company Number: US-ABBOTT-11P-163-0722779-00

PATIENT
  Age: 42 Year
  Sex: Female

DRUGS (4)
  1. HUMIRA [Suspect]
     Indication: RHEUMATOID ARTHRITIS
     Dates: start: 20110411
  2. NOVOLIN PUMP [Concomitant]
     Indication: TYPE 1 DIABETES MELLITUS
  3. SYNTHROID [Concomitant]
     Indication: HYPERTHYROIDISM
  4. PREDNISONE TAB [Concomitant]
     Indication: MENISCUS LESION

REACTIONS (4)
  - COUGH [None]
  - GASTROENTERITIS VIRAL [None]
  - RASH PAPULAR [None]
  - SNEEZING [None]
